FAERS Safety Report 6170787-9 (Version None)
Quarter: 2009Q2

REPORT INFORMATION
  Report Type: 
  Country: None (occurrence: None)
  Receive Date: 20090427
  Receipt Date: 20090413
  Transmission Date: 20091009
  Serious: Yes (Hospitalization)
  Sender: FDA-Public Use
  Company Number: A-NJ2009-24150

PATIENT
  Age: 61 Year
  Sex: Female
  Weight: 153.7 kg

DRUGS (11)
  1. TRACLEER [Suspect]
     Indication: PULMONARY ARTERIAL HYPERTENSION
     Dosage: 62.5 MG, BID, ORAL
     Route: 048
     Dates: start: 20090224, end: 20090227
  2. ASPIRIN [Concomitant]
  3. CARDIZEM [Concomitant]
  4. LASIX [Concomitant]
  5. METOPROLOL TARTRATE [Concomitant]
  6. VYTORIN [Concomitant]
  7. XOPENEX [Concomitant]
  8. OXYGEN (OXYGEN) [Concomitant]
  9. NITROQUICK (GLYCERYL TRINITRATE) [Concomitant]
  10. DARVOCET -N (PARACETAMOL, DEXTROPROPOXYPHENE NAPSILATE) [Concomitant]
  11. NOVOLIN (INSULIN) [Concomitant]

REACTIONS (9)
  - BLOOD PRESSURE SYSTOLIC INCREASED [None]
  - BRONCHOSPASM [None]
  - CARDIAC ENZYMES INCREASED [None]
  - CHEST PAIN [None]
  - DYSPNOEA [None]
  - MYOCARDIAL INFARCTION [None]
  - OEDEMA PERIPHERAL [None]
  - RESPIRATORY FAILURE [None]
  - WEIGHT INCREASED [None]
